FAERS Safety Report 8338506-5 (Version None)
Quarter: 2012Q2

REPORT INFORMATION
  Report Type: 
  Country: None (occurrence: None)
  Receive Date: 20120504
  Receipt Date: 20120425
  Transmission Date: 20120825
  Serious: Yes (Other)
  Sender: FDA-Public Use
  Company Number: US-ELI_LILLY_AND_COMPANY-US201204010134

PATIENT
  Age: 82 Year
  Sex: Male

DRUGS (12)
  1. ATENOLOL [Concomitant]
     Dosage: 25 MG, QD
  2. ASPIRIN [Concomitant]
     Dosage: 325 MG, EVERY OTHER DAY
  3. CORDARONE [Concomitant]
     Dosage: 200 MG, QD
  4. PLAVIX [Concomitant]
     Dosage: 75 MG, QD
  5. FLOMAX [Concomitant]
     Dosage: 0.4 MG, QD
  6. CAPTOPRIL [Concomitant]
     Dosage: 25 MG, TID
  7. AXIRON [Suspect]
     Indication: BLOOD TESTOSTERONE DECREASED
     Dosage: 60 MG, QD
     Dates: start: 20111225, end: 20120425
  8. MULTI-VITAMIN [Concomitant]
     Dosage: UNK, QD
  9. FISH OIL [Concomitant]
     Dosage: 1000 MG, BID
  10. TRICOR [Concomitant]
     Dosage: 145 MG, QD
  11. LIPITOR [Concomitant]
     Dosage: 10 MG, EVERY OTHER DAY
  12. MAGNESIUM [Concomitant]
     Dosage: 400 MG, TID

REACTIONS (2)
  - DYSPNOEA [None]
  - ATRIAL FIBRILLATION [None]
